FAERS Safety Report 10257470 (Version 1)
Quarter: 2014Q2

REPORT INFORMATION
  Report Type: Spontaneous
  Country: DE (occurrence: None)
  Receive Date: 20140620
  Receipt Date: 20140620
  Transmission Date: 20141212
  Serious: Yes (Death)
  Sender: FDA-Public Use
  Company Number: 2014COR00011

PATIENT
  Sex: 0

DRUGS (1)
  1. METHYLPHENIDATE (METHYLPHENIDATE) UNKNOWN [Suspect]
     Dosage: NASAL
     Route: 045

REACTIONS (3)
  - Poisoning [None]
  - Toxicity to various agents [None]
  - Incorrect route of drug administration [None]
